FAERS Safety Report 8401155-4 (Version None)
Quarter: 2012Q2

REPORT INFORMATION
  Report Type: 
  Country: None (occurrence: None)
  Receive Date: 20120525
  Receipt Date: 20120509
  Transmission Date: 20120825
  Serious: Yes (Other)
  Sender: FDA-Public Use
  Company Number: DKLU1079594

PATIENT
  Sex: Female

DRUGS (5)
  1. ANTIFUNGAL (TOLNAFTATE) [Concomitant]
  2. NEOPROFEN [Suspect]
     Indication: PATENT DUCTUS ARTERIOSUS
  3. LEVOTHYROXINE SODIUM [Concomitant]
  4. CORTICOSTEROIDS (CORTICOSTEROIDS) [Concomitant]
  5. ANTIBIOTICS (ANTIBIOTICS) [Concomitant]

REACTIONS (8)
  - FEEDING DISORDER NEONATAL [None]
  - RETINOPATHY OF PREMATURITY [None]
  - BRONCHOPULMONARY DYSPLASIA [None]
  - HYPOKINESIA NEONATAL [None]
  - FAILURE TO THRIVE [None]
  - SEPSIS NEONATAL [None]
  - RESPIRATORY DISORDER NEONATAL [None]
  - HYPOTHYROIDISM [None]
